FAERS Safety Report 25772472 (Version 1)
Quarter: 2025Q3

REPORT INFORMATION
  Report Type: Report from Study
  Country: CA (occurrence: CA)
  Receive Date: 20250908
  Receipt Date: 20250908
  Transmission Date: 20251021
  Serious: Yes (Hospitalization)
  Sender: CELLTRION
  Company Number: CA-CELLTRION INC.-2025CA031488

PATIENT

DRUGS (6)
  1. OMALIZUMAB [Suspect]
     Active Substance: OMALIZUMAB
     Indication: Asthma
     Dosage: 375 MILLIGRAM, Q2WEEKS
     Route: 058
  2. OMALIZUMAB [Suspect]
     Active Substance: OMALIZUMAB
     Dosage: 375 MILLIGRAM, Q2WEEKS
     Route: 058
  3. BUDESONIDE;FORMOTEROL FUMARATE DIHYDRATE;GLYCOPYRRONIUM BROMIDE [Concomitant]
     Indication: Product used for unknown indication
     Route: 065
  4. PULMICORT TURBUHALER [Concomitant]
     Active Substance: BUDESONIDE
     Indication: Product used for unknown indication
     Route: 065
  5. SINGULAIR [Concomitant]
     Active Substance: MONTELUKAST SODIUM
     Indication: Product used for unknown indication
     Route: 065
  6. TERBUTALINE SULFATE [Concomitant]
     Active Substance: TERBUTALINE SULFATE
     Indication: Product used for unknown indication
     Route: 065

REACTIONS (21)
  - Anxiety [Recovering/Resolving]
  - Chest discomfort [Recovering/Resolving]
  - Chest pain [Recovering/Resolving]
  - Crying [Recovering/Resolving]
  - Dry skin [Recovering/Resolving]
  - Discomfort [Recovering/Resolving]
  - Eczema [Recovering/Resolving]
  - Food allergy [Recovering/Resolving]
  - Dyspnoea [Recovering/Resolving]
  - Forced expiratory volume abnormal [Recovering/Resolving]
  - Hypersomnia [Recovering/Resolving]
  - Palpitations [Recovering/Resolving]
  - Throat clearing [Recovering/Resolving]
  - Wheezing [Recovering/Resolving]
  - Asthma [Recovering/Resolving]
  - Cough [Recovering/Resolving]
  - Fatigue [Recovering/Resolving]
  - Rash [Recovering/Resolving]
  - Hypersensitivity [Recovering/Resolving]
  - Weight increased [Recovering/Resolving]
  - Drug ineffective [Recovering/Resolving]
